FAERS Safety Report 18268518 (Version 1)
Quarter: 2020Q3

REPORT INFORMATION
  Report Type: Spontaneous
  Country: IL (occurrence: IL)
  Receive Date: 20200915
  Receipt Date: 20200915
  Transmission Date: 20201103
  Serious: Yes (Hospitalization, Other)
  Sender: FDA-Public Use
  Company Number: IL-NOVOPROD-752419

PATIENT
  Sex: Male

DRUGS (2)
  1. OZEMPIC [Suspect]
     Active Substance: SEMAGLUTIDE
     Indication: PRODUCT USED FOR UNKNOWN INDICATION
     Dosage: 0.25 MG, QW
     Route: 058
  2. OZEMPIC [Suspect]
     Active Substance: SEMAGLUTIDE
     Dosage: 0.25 MG, QW(RESTARTED)
     Route: 058
     Dates: start: 20200904

REACTIONS (7)
  - Pancreatic injury [Unknown]
  - Abdominal pain [Recovering/Resolving]
  - Feeding disorder [Recovered/Resolved]
  - Renal injury [Unknown]
  - Vomiting [Recovering/Resolving]
  - Nausea [Unknown]
  - Dizziness [Recovering/Resolving]
